FAERS Safety Report 15318893 (Version 1)
Quarter: 2018Q3

REPORT INFORMATION
  Report Type: Spontaneous
  Country: US (occurrence: US)
  Receive Date: 20180820
  Receipt Date: 20180820
  Transmission Date: 20181010
  Serious: No
  Sender: FDA-Public Use
  Company Number: None

PATIENT
  Sex: Female

DRUGS (1)
  1. AZITHROMYCIN 250 MG [Suspect]
     Active Substance: AZITHROMYCIN ANHYDROUS
     Indication: INFLUENZA
     Dates: start: 20180101, end: 20180123

REACTIONS (3)
  - Swelling [None]
  - Dry skin [None]
  - Influenza [None]

NARRATIVE: CASE EVENT DATE: 20180118
